FAERS Safety Report 9382480 (Version 2)
Quarter: 2013Q3

REPORT INFORMATION
  Report Type: Report from Study
  Country: US (occurrence: US)
  Receive Date: 20130703
  Receipt Date: 20130724
  Transmission Date: 20140515
  Serious: Yes (Other)
  Sender: FDA-Public Use
  Company Number: US-US-EMD SERONO, INC.-7221535

PATIENT
  Age: 57 Year
  Sex: Female

DRUGS (5)
  1. REBIF [Suspect]
     Indication: RELAPSING-REMITTING MULTIPLE SCLEROSIS
     Dates: start: 20130523
  2. REBIF [Suspect]
     Route: 058
     Dates: start: 20130619, end: 20130624
  3. AMITRIPTYLINE                      /00002202/ [Concomitant]
     Indication: NEURALGIA
     Route: 048
     Dates: start: 20130507
  4. TIZANIDINE [Concomitant]
     Indication: MUSCLE SPASMS
     Route: 048
     Dates: start: 20130409
  5. OXYBUTYNIN                         /00538902/ [Concomitant]
     Indication: BLADDER SPASM
     Route: 048

REACTIONS (3)
  - Anaphylactic reaction [Recovered/Resolved]
  - Hypersomnia [Unknown]
  - Multiple sclerosis [Unknown]
